FAERS Safety Report 8059285-5 (Version None)
Quarter: 2012Q1

REPORT INFORMATION
  Report Type: 
  Country: None (occurrence: None)
  Receive Date: 20120120
  Receipt Date: 20120118
  Transmission Date: 20120608
  Serious: Yes (Other)
  Sender: FDA-Public Use
  Company Number: AU-PFIZER INC-2012013431

PATIENT
  Age: 37 Year

DRUGS (1)
  1. EFFEXOR XR [Suspect]

REACTIONS (1)
  - MYOCARDIAL INFARCTION [None]
